FAERS Safety Report 8808677 (Version 1)
Quarter: 2012Q4

REPORT INFORMATION
  Report Type: Spontaneous
  Country: US (occurrence: None)
  Receive Date: 20120921
  Receipt Date: 20120921
  Transmission Date: 20130627
  Serious: Yes (Disabling)
  Sender: FDA-Public Use
  Company Number: None

PATIENT
  Age: 74 Year
  Sex: Female
  Weight: 56.7 kg

DRUGS (1)
  1. KENALOG [Suspect]
     Indication: SKIN RASH
     Dates: start: 20110211

REACTIONS (2)
  - Eye disorder [None]
  - Visual acuity reduced [None]
